FAERS Safety Report 10903995 (Version 1)
Quarter: 2015Q1

REPORT INFORMATION
  Report Type: Spontaneous
  Country: JP (occurrence: None)
  Receive Date: 20150306
  Receipt Date: 20150306
  Transmission Date: 20150721
  Serious: Yes (Death, Other)
  Sender: FDA-Public Use
  Company Number: JP-20150018

PATIENT
  Sex: Male

DRUGS (3)
  1. LIPIODOL ULTRA-FLUIDE [Suspect]
     Active Substance: ETHIODIZED OIL
     Indication: THERAPEUTIC EMBOLISATION
     Route: 013
  2. EPIRUBICIN (EPIRUBICIN) [Concomitant]
  3. GELPART (GELATIN) [Concomitant]

REACTIONS (4)
  - Bile duct stenosis [None]
  - Sepsis [None]
  - Cholangitis [None]
  - Product use issue [None]
